FAERS Safety Report 7474466-7 (Version None)
Quarter: 2011Q2

REPORT INFORMATION
  Report Type: 
  Country: None (occurrence: None)
  Receive Date: 20110512
  Receipt Date: 20110124
  Transmission Date: 20111010
  Serious: No
  Sender: FDA-Public Use
  Company Number: US-BAYER-2011-007858

PATIENT
  Age: 35 Year
  Sex: Female

DRUGS (1)
  1. AVELOX [Suspect]
     Indication: CYSTITIS
     Dosage: 400 MG, UNK
     Dates: start: 20110101

REACTIONS (5)
  - SWELLING FACE [None]
  - HYPERSENSITIVITY [None]
  - LIP SWELLING [None]
  - DRY MOUTH [None]
  - PRURITUS [None]
